FAERS Safety Report 21571316 (Version 1)
Quarter: 2022Q4

REPORT INFORMATION
  Report Type: Spontaneous
  Country: US (occurrence: None)
  Receive Date: 20221107
  Receipt Date: 20221107
  Transmission Date: 20230113
  Serious: Yes (Death)
  Sender: FDA-Public Use
  Company Number: None

PATIENT
  Sex: Male

DRUGS (2)
  1. TOBRAMYCIN [Suspect]
     Active Substance: TOBRAMYCIN
     Indication: Essential hypertension
     Dosage: OTHER QUANTITY : 300MG/4ML;?FREQUENCY : AS DIRECTED;?OTHER ROUTE : NEBULIZER;?
     Route: 050
     Dates: start: 20220614
  2. TOBRAMYCIN [Suspect]
     Active Substance: TOBRAMYCIN
     Dosage: FREQUENCY : AS DIRECTED;?OTHER ROUTE : NEBULIZER;?
     Route: 050

REACTIONS (1)
  - Death [None]
